FAERS Safety Report 21499847 (Version 1)
Quarter: 2022Q4

REPORT INFORMATION
  Report Type: Spontaneous
  Country: US (occurrence: US)
  Receive Date: 20221024
  Receipt Date: 20221024
  Transmission Date: 20230113
  Serious: No
  Sender: FDA-Public Use
  Company Number: US-PFIZER INC-PV202200086896

PATIENT
  Age: 73 Year
  Sex: Female

DRUGS (1)
  1. TOVIAZ [Suspect]
     Active Substance: FESOTERODINE FUMARATE
     Dosage: 4 MG, 1X/DAY, (4 MG PO QDAY 30 TABS 0RF)
     Route: 048

REACTIONS (2)
  - Mixed incontinence [Unknown]
  - Stress [Unknown]
